FAERS Safety Report 15742376 (Version 2)
Quarter: 2018Q4

REPORT INFORMATION
  Report Type: Spontaneous
  Country: FR (occurrence: FR)
  Receive Date: 20181219
  Receipt Date: 20181226
  Transmission Date: 20190205
  Serious: Yes (Hospitalization, Other)
  Sender: FDA-Public Use
  Company Number: PHHY2018FR068745

PATIENT
  Age: 49 Year
  Sex: Female

DRUGS (8)
  1. DILTIAZEM. [Suspect]
     Active Substance: DILTIAZEM
     Indication: SECONDARY HYPERTENSION
     Dosage: 1 DF, QD
     Route: 048
     Dates: start: 20040128, end: 20040204
  2. IBUPROFEN. [Suspect]
     Active Substance: IBUPROFEN
     Indication: PYREXIA
  3. ADVIL [Suspect]
     Active Substance: IBUPROFEN
     Indication: HEADACHE
     Dosage: UNK
     Route: 065
  4. IBUPROFEN. [Suspect]
     Active Substance: IBUPROFEN
     Indication: HEADACHE
     Dosage: 1 DF, TID
     Route: 048
     Dates: start: 20040203, end: 20040204
  5. ADVIL [Suspect]
     Active Substance: IBUPROFEN
     Indication: PYREXIA
     Dosage: 1 ?G/L, TID
     Route: 048
     Dates: start: 20040203, end: 20040204
  6. IRBESARTAN. [Suspect]
     Active Substance: IRBESARTAN
     Indication: SECONDARY HYPERTENSION
     Dosage: 1 ?G/L, QD
     Route: 048
     Dates: start: 20040128, end: 20040204
  7. IMODIUM [Suspect]
     Active Substance: LOPERAMIDE HYDROCHLORIDE
     Indication: PYREXIA
     Dosage: 1 ?G/L, TID
     Route: 048
     Dates: start: 20040203, end: 20040204
  8. IRBESARTAN. [Suspect]
     Active Substance: IRBESARTAN
     Indication: HYPERTENSION
     Dosage: UNK, QD
     Route: 065
     Dates: start: 20020101, end: 20040204

REACTIONS (6)
  - Asthenia [Recovered/Resolved]
  - Acute generalised exanthematous pustulosis [Recovered/Resolved]
  - Oedema peripheral [Recovered/Resolved]
  - Hyperpyrexia [Recovered/Resolved]
  - Dermatitis exfoliative generalised [Recovered/Resolved]
  - Headache [Recovered/Resolved]

NARRATIVE: CASE EVENT DATE: 20040203
